FAERS Safety Report 11102429 (Version 1)
Quarter: 2015Q2

REPORT INFORMATION
  Report Type: Spontaneous
  Country: US (occurrence: US)
  Receive Date: 20150511
  Receipt Date: 20150511
  Transmission Date: 20150821
  Serious: Yes (Death, Hospitalization)
  Sender: FDA-Public Use
  Company Number: US-SUN PHARMACEUTICAL INDUSTRIES LTD-2015US-97033

PATIENT
  Age: 65 Year
  Sex: Female

DRUGS (4)
  1. AMIODARONE [Suspect]
     Active Substance: AMIODARONE
     Indication: ATRIAL FIBRILLATION
     Dosage: 3 DOSES OF 200MG
     Route: 048
  2. AMIODARONE [Suspect]
     Active Substance: AMIODARONE
     Indication: ATRIAL FIBRILLATION
     Dosage: 150 MG
     Route: 040
  3. AMIODARONE [Suspect]
     Active Substance: AMIODARONE
     Indication: ATRIAL FIBRILLATION
     Dosage: (0.5 MG/MIN, APPROXIMATELY 900MG IV OVERNIGHT)
     Route: 042
  4. PARACETAMOL [Suspect]
     Active Substance: ACETAMINOPHEN
     Indication: PYREXIA
     Dosage: (TOTAL 3900 MG IN 48 HOURS)
     Route: 065

REACTIONS (5)
  - Hypotension [Unknown]
  - Multi-organ failure [Fatal]
  - Fungaemia [Unknown]
  - Nausea [Unknown]
  - Drug-induced liver injury [Recovering/Resolving]
